FAERS Safety Report 10182639 (Version 1)
Quarter: 2014Q2

REPORT INFORMATION
  Report Type: Spontaneous
  Country: CN (occurrence: None)
  Receive Date: 20140516
  Receipt Date: 20140516
  Transmission Date: 20141212
  Serious: Yes (Life-Threatening)
  Sender: FDA-Public Use
  Company Number: VAL_03128_2014

PATIENT
  Sex: Female
  Weight: 45 kg

DRUGS (2)
  1. PARLODEL (PARLODEL-BROMOCRIPTINE MESILATE) 2.5 MG [Suspect]
     Indication: GALACTORRHOEA
     Route: 048
     Dates: start: 20131125, end: 20131125
  2. VITAMIN B6 [Concomitant]

REACTIONS (6)
  - Fatigue [None]
  - Body temperature decreased [None]
  - Pallor [None]
  - Blood pressure decreased [None]
  - Convulsion [None]
  - Vomiting [None]
